FAERS Safety Report 7360221-5 (Version None)
Quarter: 2011Q1

REPORT INFORMATION
  Report Type: 
  Country: None (occurrence: None)
  Receive Date: 20110307
  Receipt Date: 20110212
  Transmission Date: 20110831
  Serious: No
  Sender: FDA-Public Use
  Company Number: 2011AP000318

PATIENT
  Sex: Female

DRUGS (5)
  1. LYRICA [Suspect]
     Dosage: 2 DF;BID;TRPL
     Route: 064
     Dates: start: 20080815
  2. CO-CODAMOL (PANADEINE CO) [Suspect]
     Dosage: 2 DF;  TRPL
     Route: 063
     Dates: start: 20090106
  3. HYDROXOCOBALAMIN [Suspect]
     Dosage: 3 DF;QM; TRPL
     Route: 064
     Dates: start: 20091216
  4. OMEPRAZOLE [Suspect]
     Dosage: 20 MG;QD; TRPL
     Route: 064
     Dates: start: 20081016
  5. FOLIC ACID [Suspect]
     Dosage: 1 DF;QD;TRPL
     Route: 064
     Dates: start: 20090501

REACTIONS (4)
  - FORCEPS DELIVERY [None]
  - MATERNAL DRUGS AFFECTING FOETUS [None]
  - PELVIC DEFORMITY [None]
  - HIP DYSPLASIA [None]
